FAERS Safety Report 5802410-4 (Version None)
Quarter: 2008Q3

REPORT INFORMATION
  Report Type: 
  Country: None (occurrence: None)
  Receive Date: 20080707
  Receipt Date: 20080623
  Transmission Date: 20090109
  Serious: Yes (Hospitalization, Other)
  Sender: FDA-Public Use
  Company Number: CA-GENENTECH-263891

PATIENT
  Age: 45 Year
  Sex: Male

DRUGS (6)
  1. RITUXAN [Suspect]
     Indication: CASTLEMAN'S DISEASE
     Dosage: UNK, X4
     Dates: start: 20030801
  2. NELFINAVIR [Suspect]
     Indication: HIV INFECTION
     Dosage: UNK, UNK
     Dates: start: 20030101
  3. ZIDOVUDINE [Suspect]
     Indication: HIV INFECTION
     Dosage: UNK, UNK
     Dates: start: 20030101
  4. LAMIVUDINE [Suspect]
     Indication: HIV INFECTION
     Dosage: UNK, UNK
     Dates: start: 20030101
  5. DOXORUBICIN HCL [Suspect]
     Indication: CASTLEMAN'S DISEASE
     Dosage: UNK, X5
     Dates: start: 20030801
  6. DEXAMETHASONE [Suspect]
     Indication: CASTLEMAN'S DISEASE

REACTIONS (4)
  - ANAEMIA [None]
  - FEBRILE NEUTROPENIA [None]
  - GASTROINTESTINAL TOXICITY [None]
  - PYREXIA [None]
